FAERS Safety Report 6659211-7 (Version None)
Quarter: 2010Q1

REPORT INFORMATION
  Report Type: 
  Country: None (occurrence: None)
  Receive Date: 20100330
  Receipt Date: 20100316
  Transmission Date: 20100710
  Serious: No
  Sender: FDA-Public Use
  Company Number: US-BIOGENIDEC-2010BI009290

PATIENT
  Age: 55 Year
  Sex: Female

DRUGS (3)
  1. TYSABRI [Suspect]
     Indication: MULTIPLE SCLEROSIS
     Route: 042
     Dates: start: 20050215, end: 20050215
  2. TYSABRI [Suspect]
     Route: 042
     Dates: start: 20070301, end: 20071226
  3. TYSABRI [Suspect]
     Route: 042
     Dates: start: 20080331

REACTIONS (5)
  - ARTHRITIS [None]
  - MUSCULAR WEAKNESS [None]
  - NASOPHARYNGITIS [None]
  - POSTNASAL DRIP [None]
  - TENDONITIS [None]
